FAERS Safety Report 12956488 (Version 1)
Quarter: 2016Q4

REPORT INFORMATION
  Report Type: Spontaneous
  Country: None (occurrence: US)
  Receive Date: 20161119
  Receipt Date: 20161119
  Transmission Date: 20170207
  Serious: No
  Sender: FDA-Public Use
  Company Number: US-AMPHASTAR PHARMACEUTICALS, INC.-1059793

PATIENT
  Age: 26 Year
  Sex: Female
  Weight: 112.27 kg

DRUGS (5)
  1. ENOXAPARIN SODIUM. [Suspect]
     Active Substance: ENOXAPARIN SODIUM
     Indication: PREGNANCY
     Route: 058
     Dates: start: 201510
  2. VITAMIN B6 [Concomitant]
     Active Substance: PYRIDOXINE HYDROCHLORIDE
  3. PRENATAL VITAMINS PLUS [Concomitant]
     Active Substance: .ALPHA.-TOCOPHEROL ACETATE, DL-\ASCORBIC ACID\CALCIUM\CHOLECALCIFEROL\COPPER\CYANOCOBALAMIN\FOLIC ACID\IRON\NIACIN\PYRIDOXINE\RIBOFLAVIN\THIAMINE MONONITRATE\VITAMIN A\ZINC
  4. MACROBID [Concomitant]
     Active Substance: NITROFURANTOIN\NITROFURANTOIN MONOHYDRATE
  5. ZOFRAN [Concomitant]
     Active Substance: ONDANSETRON HYDROCHLORIDE

REACTIONS (3)
  - Maternal exposure during pregnancy [None]
  - Injection site haemorrhage [Recovered/Resolved]
  - Pregnancy [None]

NARRATIVE: CASE EVENT DATE: 201601
